FAERS Safety Report 8550273 (Version 2)
Quarter: 2012Q4

REPORT INFORMATION
  Report Type: Report from Study
  Country: JP (occurrence: JP)
  Receive Date: 20120507
  Receipt Date: 20120920
  Transmission Date: 20130627
  Serious: Yes (Congenital Anomaly, Other)
  Sender: FDA-Public Use
  Company Number: JP-ROCHE-1064804

PATIENT
  Sex: Female

DRUGS (1)
  1. OMALIZUMAB [Suspect]
     Indication: ASTHMA
     Dosage: maternal dose
     Route: 064
     Dates: start: 20110202, end: 20110516

REACTIONS (4)
  - Pulmonary sequestration [Unknown]
  - Foetal exposure during pregnancy [Unknown]
  - Bronchial obstruction [Unknown]
  - Transposition of the great vessels [Unknown]
